FAERS Safety Report 5181725-X (Version None)
Quarter: 2006Q4

REPORT INFORMATION
  Report Type: 
  Country: None (occurrence: None)
  Receive Date: 20061220
  Receipt Date: 20060228
  Transmission Date: 20070319
  Serious: No
  Sender: FDA-Public Use
  Company Number: US-GLAXOSMITHKLINE-A0595704A

PATIENT
  Age: 35 Year
  Sex: Male

DRUGS (1)
  1. COMMIT [Suspect]
     Dates: start: 20060214, end: 20060214

REACTIONS (2)
  - MOUTH ULCERATION [None]
  - OEDEMA MOUTH [None]
